FAERS Safety Report 24644704 (Version 1)
Quarter: 2024Q4

REPORT INFORMATION
  Report Type: Spontaneous
  Country: GB (occurrence: GB)
  Receive Date: 20241121
  Receipt Date: 20241121
  Transmission Date: 20250114
  Serious: Yes (Hospitalization, Disabling, Other)
  Sender: NOVO NORDISK
  Company Number: None

PATIENT
  Age: 46 Year
  Sex: Female
  Weight: 68 kg

DRUGS (1)
  1. OZEMPIC [Suspect]
     Active Substance: SEMAGLUTIDE
     Indication: Weight control
     Dosage: ONCE A WEEK FULL PEN DOSE FOUR WEEK PEN
     Dates: end: 20210606

REACTIONS (3)
  - Renal pain [Recovering/Resolving]
  - Thyrotoxic crisis [Recovering/Resolving]
  - Product use in unapproved indication [Unknown]
